FAERS Safety Report 15938213 (Version 1)
Quarter: 2019Q1

REPORT INFORMATION
  Report Type: Spontaneous
  Country: US (occurrence: US)
  Receive Date: 20190208
  Receipt Date: 20190208
  Transmission Date: 20190417
  Serious: No
  Sender: FDA-Public Use
  Company Number: US-ROCHE-2200069

PATIENT
  Age: 67 Year
  Sex: Female
  Weight: 59.02 kg

DRUGS (5)
  1. ADVAIR HFA [Concomitant]
     Active Substance: FLUTICASONE PROPIONATE\SALMETEROL XINAFOATE
     Dosage: ONGOING: YES
     Route: 065
  2. XOLAIR [Suspect]
     Active Substance: OMALIZUMAB
     Indication: ASTHMA
     Dosage: 1ST DOSE GOT SHOT IN EACH ARM ;ONGOING: UNKNOWN
     Route: 058
     Dates: start: 20180917
  3. SINGULAIR [Concomitant]
     Active Substance: MONTELUKAST SODIUM
     Indication: HYPERSENSITIVITY
     Dosage: ONGOING: YES
     Route: 065
  4. IMITREX [Concomitant]
     Active Substance: SUMATRIPTAN SUCCINATE
     Indication: HEADACHE
     Dosage: TAKES OCCASIONALLY ;ONGOING: UNKNOWN
     Route: 065
  5. FLU SHOT [Concomitant]
     Active Substance: INFLUENZA VIRUS VACCINE
     Dosage: ONGOING: UNKNOWN
     Route: 065
     Dates: start: 20181005

REACTIONS (9)
  - Joint stiffness [Unknown]
  - Arthralgia [Unknown]
  - Viral infection [Unknown]
  - Arthritis [Unknown]
  - Headache [Unknown]
  - Fatigue [Recovering/Resolving]
  - Pain in extremity [Unknown]
  - Night sweats [Recovered/Resolved]
  - Pain [Recovering/Resolving]

NARRATIVE: CASE EVENT DATE: 20180917
